FAERS Safety Report 20225093 (Version 3)
Quarter: 2022Q1

REPORT INFORMATION
  Report Type: Report from Study
  Country: US (occurrence: US)
  Receive Date: 20211223
  Receipt Date: 20220322
  Transmission Date: 20220423
  Serious: No
  Sender: FDA-Public Use
  Company Number: US-ABBVIE-21K-163-4208805-00

PATIENT
  Sex: Female
  Weight: 62.198 kg

DRUGS (25)
  1. RINVOQ [Suspect]
     Active Substance: UPADACITINIB
     Indication: Rheumatoid arthritis
     Route: 048
     Dates: start: 20211110, end: 20211117
  2. RINVOQ [Suspect]
     Active Substance: UPADACITINIB
     Route: 048
  3. RINVOQ [Suspect]
     Active Substance: UPADACITINIB
     Route: 048
  4. MODERNA COVID-19 VACCINE [Concomitant]
     Active Substance: ELASOMERAN
     Indication: COVID-19 immunisation
     Dosage: 1ST DOSE
     Route: 030
  5. MODERNA COVID-19 VACCINE [Concomitant]
     Active Substance: ELASOMERAN
     Dosage: 2ND DOSE
     Route: 030
  6. MODERNA COVID-19 VACCINE [Concomitant]
     Active Substance: ELASOMERAN
     Dosage: BOOSTER DOSE
     Route: 030
  7. ASPIRIN [Concomitant]
     Active Substance: ASPIRIN
     Indication: Product used for unknown indication
     Dosage: 81
  8. ASPIRIN [Concomitant]
     Active Substance: ASPIRIN
     Dosage: 90
  9. ASPIRIN [Concomitant]
     Active Substance: ASPIRIN
     Dosage: 81
  10. BRILINTA [Concomitant]
     Active Substance: TICAGRELOR
     Indication: Product used for unknown indication
     Dosage: 90
  11. BRILINTA [Concomitant]
     Active Substance: TICAGRELOR
     Dosage: 90
  12. BRILINTA [Concomitant]
     Active Substance: TICAGRELOR
     Dosage: 81
  13. BRILINTA [Concomitant]
     Active Substance: TICAGRELOR
  14. ATORVASTATIN [Concomitant]
     Active Substance: ATORVASTATIN
     Indication: Product used for unknown indication
  15. ATORVASTATIN [Concomitant]
     Active Substance: ATORVASTATIN
     Dosage: 90
  16. ATORVASTATIN [Concomitant]
     Active Substance: ATORVASTATIN
     Dosage: 81
  17. ATORVASTATIN [Concomitant]
     Active Substance: ATORVASTATIN
  18. METOPROLOL [Concomitant]
     Active Substance: METOPROLOL
     Indication: Product used for unknown indication
     Dosage: 25
  19. METOPROLOL [Concomitant]
     Active Substance: METOPROLOL
     Dosage: 90
  20. METOPROLOL [Concomitant]
     Active Substance: METOPROLOL
     Dosage: 81
  21. METOPROLOL [Concomitant]
     Active Substance: METOPROLOL
  22. PREGABALIN [Concomitant]
     Active Substance: PREGABALIN
     Indication: Product used for unknown indication
     Dosage: 150
  23. PREGABALIN [Concomitant]
     Active Substance: PREGABALIN
     Dosage: 90
  24. PREGABALIN [Concomitant]
     Active Substance: PREGABALIN
     Dosage: 81
  25. PREGABALIN [Concomitant]
     Active Substance: PREGABALIN

REACTIONS (5)
  - Bursitis [Unknown]
  - Arthropathy [Unknown]
  - Lung disorder [Recovering/Resolving]
  - Laryngitis [Unknown]
  - Constipation [Unknown]
